FAERS Safety Report 19266821 (Version 2)
Quarter: 2021Q2

REPORT INFORMATION
  Report Type: Spontaneous
  Country: US (occurrence: US)
  Receive Date: 20210518
  Receipt Date: 20210519
  Transmission Date: 20210717
  Serious: Yes (Hospitalization, Other)
  Sender: FDA-Public Use
  Company Number: US-ROCHE-2826563

PATIENT
  Sex: Female

DRUGS (14)
  1. LOSARTAN. [Concomitant]
     Active Substance: LOSARTAN
  2. ENTECAVIR. [Concomitant]
     Active Substance: ENTECAVIR
     Dosage: TAKE 1 TABLET (0.5 MG TOTAL) BY MOUTH EVERY OTHER DAY
  3. FAMOTIDINE. [Concomitant]
     Active Substance: FAMOTIDINE
  4. ESTRADIOL. [Concomitant]
     Active Substance: ESTRADIOL
     Dosage: PLACE 1 G VAGINALLY DAILY (PATIENT NOT TAKING: REPORTED ON 28/OCT/2020
     Route: 067
  5. SULFAMETHOXAZOLE AND TRIMETHOPRIM [Concomitant]
     Active Substance: SULFAMETHOXAZOLE\TRIMETHOPRIM
     Dosage: 800?160 MG?TAKE 1 TABLET BY MOUTH 3 (THREE) TIMES A WEEK ON MONDAYS, WEDNESDAYS, AND FRIDAYS
  6. ATORVASTATIN [Concomitant]
     Active Substance: ATORVASTATIN
  7. CALCIUM CARBONATE/VITAMIN D3 [Concomitant]
     Active Substance: CALCIUM CARBONATE\CHOLECALCIFEROL
     Route: 048
  8. HYDROXYCHLOROQUINE [Concomitant]
     Active Substance: HYDROXYCHLOROQUINE
  9. SENNA [Concomitant]
     Active Substance: SENNA LEAF\SENNOSIDES\SENNOSIDES A AND B
     Indication: CONSTIPATION
     Dosage: TAKE 1?2 TABLETS (8.6? 17.2 MG TOTAL) BY MOUTH DAILY AS NEEDED FOR CONSTIPATION
     Route: 048
  10. NAB?PACLITAXEL [Concomitant]
     Active Substance: PACLITAXEL
     Dosage: FIRST DOSE AT REDUCED DOSES
     Dates: start: 20200608
  11. RITUXAN [Suspect]
     Active Substance: RITUXIMAB
     Indication: PRODUCT USED FOR UNKNOWN INDICATION
     Route: 065
  12. AMLODIPINE [Concomitant]
     Active Substance: AMLODIPINE BESYLATE
     Dosage: TAKE 1 TABLET BY MOUTH AS BEDTIME
     Route: 048
  13. PREDNISONE. [Concomitant]
     Active Substance: PREDNISONE
     Dosage: TAKE 1 TABLET (10 MG TOTAL) BY MOUTH DAILY WITH BREAKFAST
  14. GEMCITABINE. [Concomitant]
     Active Substance: GEMCITABINE
     Dosage: FIRST DOSE AT REDUCED DOSES
     Dates: start: 20200608

REACTIONS (14)
  - Abdominal discomfort [Unknown]
  - Pulmonary artery occlusion [Unknown]
  - Jaundice cholestatic [Unknown]
  - Hepatic lesion [Unknown]
  - Pleural effusion [Unknown]
  - Platelet count decreased [Unknown]
  - Enterobacter test positive [Unknown]
  - Pancreatic atrophy [Unknown]
  - Oncologic complication [Unknown]
  - Pyrexia [Unknown]
  - Citrobacter test positive [Unknown]
  - Fatigue [Unknown]
  - Rib fracture [Unknown]
  - Pancreatic mass [Unknown]
